FAERS Safety Report 7429241-6 (Version None)
Quarter: 2011Q2

REPORT INFORMATION
  Report Type: 
  Country: None (occurrence: None)
  Receive Date: 20110421
  Receipt Date: 20110412
  Transmission Date: 20111010
  Serious: Yes (Other)
  Sender: FDA-Public Use
  Company Number: CH-ASTRAZENECA-2011SE21243

PATIENT
  Age: 62 Year
  Sex: Female

DRUGS (4)
  1. CRESTOR [Suspect]
     Route: 048
     Dates: start: 20110228, end: 20110329
  2. TRAMUNDIN [Concomitant]
     Route: 048
  3. PRAVASTATIN [Suspect]
     Route: 048
     Dates: start: 20101109, end: 20110111
  4. APROVEL [Concomitant]
     Route: 048
     Dates: start: 20101109

REACTIONS (3)
  - TENDONITIS [None]
  - MYALGIA [None]
  - ARTHRALGIA [None]
